FAERS Safety Report 4932011-1 (Version None)
Quarter: 2006Q1

REPORT INFORMATION
  Report Type: 
  Country: None (occurrence: None)
  Receive Date: 20060303
  Receipt Date: 20060223
  Transmission Date: 20060701
  Serious: Yes (Hospitalization)
  Sender: FDA-Public Use
  Company Number: FR-GLAXOSMITHKLINE-B0413892A

PATIENT
  Age: 58 Year
  Sex: Male

DRUGS (15)
  1. TRACRIUM [Suspect]
     Indication: ANAESTHESIA
     Route: 042
     Dates: start: 20050426, end: 20050426
  2. ZINNAT INJECTABLE [Suspect]
     Indication: DRUG USE FOR UNKNOWN INDICATION
     Route: 042
     Dates: start: 20050426, end: 20050426
  3. HYPNOVEL [Suspect]
     Indication: ANAESTHESIA
     Route: 042
     Dates: start: 20050426, end: 20050426
  4. DIPRIVAN [Suspect]
     Indication: ANAESTHESIA
     Route: 042
     Dates: start: 20050426, end: 20050426
  5. SUFENTA [Suspect]
     Indication: ANAESTHESIA
     Route: 042
     Dates: start: 20050426, end: 20050426
  6. FOSAMAX [Concomitant]
  7. OROCAL [Concomitant]
  8. TRAMADOL HCL [Concomitant]
  9. EUPANTOL [Concomitant]
  10. DEROXAT [Concomitant]
  11. STILNOX [Concomitant]
  12. FLECAINIDE ACETATE [Concomitant]
  13. COVERSYL [Concomitant]
  14. SECTRAL [Concomitant]
  15. KARDEGIC [Concomitant]

REACTIONS (2)
  - BRONCHOSPASM [None]
  - OXYGEN SATURATION DECREASED [None]
